FAERS Safety Report 9445346 (Version 1)
Quarter: 2013Q3

REPORT INFORMATION
  Report Type: Spontaneous
  Country: US (occurrence: US)
  Receive Date: 20130807
  Receipt Date: 20130807
  Transmission Date: 20140515
  Serious: Yes (Other)
  Sender: FDA-Public Use
  Company Number: US-BAYER-2013-093213

PATIENT
  Age: 33 Year
  Sex: Female

DRUGS (1)
  1. MIRENA [Suspect]
     Indication: CONTRACEPTION
     Dosage: 20 ?G/D, CONT
     Route: 015
     Dates: start: 20110711

REACTIONS (7)
  - Convulsions local [Recovered/Resolved]
  - Loss of consciousness [Recovered/Resolved]
  - Dizziness [Recovered/Resolved]
  - Visual impairment [Recovered/Resolved]
  - Abnormal sensation in eye [Recovered/Resolved]
  - Head discomfort [Recovered/Resolved]
  - Hunger [Recovered/Resolved]
